FAERS Safety Report 10619954 (Version 1)
Quarter: 2014Q4

REPORT INFORMATION
  Report Type: Spontaneous
  Country: US (occurrence: None)
  Receive Date: 20141126
  Receipt Date: 20141126
  Transmission Date: 20150529
  Serious: Yes (Other)
  Sender: FDA-Public Use
  Company Number: 001834333A

PATIENT
  Age: 37 Year
  Sex: Female

DRUGS (4)
  1. PROACTIVPLUS SKIN SMOOTHING EXFOLIATOR [Suspect]
     Active Substance: BENZOYL PEROXIDE
     Indication: ACNE
     Dosage: DERMAL
     Dates: start: 20140907, end: 20141013
  2. PROACTIV PLUS MARK FADING [Suspect]
     Active Substance: GLYCOLIC ACID\SALICYLIC ACID
     Indication: ACNE
     Route: 023
     Dates: start: 20140907, end: 20141013
  3. PROACTIV PLUS PORE TARGETING TREATMENT [Suspect]
     Active Substance: BENZOYL PEROXIDE
     Indication: ACNE
     Dosage: DERMAL
     Dates: start: 20140907, end: 20141013
  4. PROACTIV PLUS COMPLEXION PERFECTING HYDRATOR [Suspect]
     Active Substance: SALICYLIC ACID
     Indication: ACNE
     Route: 023
     Dates: start: 20140907, end: 20141013

REACTIONS (3)
  - Swelling face [None]
  - Pruritus generalised [None]
  - Eye swelling [None]

NARRATIVE: CASE EVENT DATE: 20141013
